FAERS Safety Report 4774996-2 (Version None)
Quarter: 2005Q3

REPORT INFORMATION
  Report Type: 
  Country: None (occurrence: None)
  Receive Date: 20050920
  Receipt Date: 20050905
  Transmission Date: 20060218
  Serious: Yes (Hospitalization)
  Sender: FDA-Public Use
  Company Number: 217595

PATIENT
  Age: 59 Year
  Sex: Male

DRUGS (3)
  1. HERCEPTIN [Suspect]
     Indication: BLADDER CANCER
     Dosage: 400 MG, Q3W, INTRAVENOUS
     Route: 042
     Dates: start: 20040612, end: 20040702
  2. CARBOPLATIN [Suspect]
     Indication: BLADDER CANCER
     Dosage: 300 MG, Q3W, INTRAVENOUS
     Route: 042
     Dates: start: 20040612, end: 20040702
  3. GEMCITABINE (GEMCITABINE HYDROCHLORIDE) [Suspect]
     Indication: BLADDER CANCER
     Dosage: 1650 MG, DAY1 + 8/Q3W, INTRAVENOUS
     Route: 042
     Dates: start: 20040612, end: 20040701

REACTIONS (4)
  - APLASIA [None]
  - HAEMATURIA [None]
  - THROMBOCYTOPENIA [None]
  - WHITE BLOOD CELL COUNT DECREASED [None]
